FAERS Safety Report 10022150 (Version 2)
Quarter: 2015Q1

REPORT INFORMATION
  Report Type: Spontaneous
  Country: US (occurrence: US)
  Receive Date: 20140319
  Receipt Date: 20150219
  Transmission Date: 20150720
  Serious: Yes (Hospitalization)
  Sender: FDA-Public Use
  Company Number: US-GLAXOSMITHKLINE-A1065635A

PATIENT
  Age: 57 Year
  Sex: Female

DRUGS (1)
  1. VENTOLIN [Suspect]
     Active Substance: ALBUTEROL SULFATE
     Indication: PRODUCT USED FOR UNKNOWN INDICATION
     Dosage: 90 MCG, UNKNOWN DOSING
     Route: 065
     Dates: start: 20110906

REACTIONS (3)
  - Malaise [Unknown]
  - Influenza [Unknown]
  - Anxiety [Unknown]

NARRATIVE: CASE EVENT DATE: 201402
